FAERS Safety Report 15406201 (Version 2)
Quarter: 2018Q4

REPORT INFORMATION
  Report Type: Report from Study
  Country: US (occurrence: US)
  Receive Date: 20180920
  Receipt Date: 20181130
  Transmission Date: 20190204
  Serious: Yes (Death, Hospitalization)
  Sender: FDA-Public Use
  Company Number: US-ROCHE-2149813

PATIENT
  Age: 74 Year
  Sex: Male
  Weight: 110.8 kg

DRUGS (2)
  1. ATEZOLIZUMAB. [Suspect]
     Active Substance: ATEZOLIZUMAB
     Indication: GLIOBLASTOMA MULTIFORME
     Route: 042
     Dates: start: 20180517, end: 20180628
  2. TEMOZOLOMIDE. [Suspect]
     Active Substance: TEMOZOLOMIDE
     Indication: GLIOBLASTOMA MULTIFORME
     Route: 048
     Dates: start: 20180517, end: 20180628

REACTIONS (5)
  - Confusional state [Unknown]
  - Mental status changes [Unknown]
  - Respiratory failure [Fatal]
  - Malnutrition [Unknown]
  - Confusional state [Unknown]

NARRATIVE: CASE EVENT DATE: 20180630
